FAERS Safety Report 20568627 (Version 2)
Quarter: 2022Q2

REPORT INFORMATION
  Report Type: Spontaneous
  Country: US (occurrence: US)
  Receive Date: 20220308
  Receipt Date: 20220624
  Transmission Date: 20220721
  Serious: No
  Sender: FDA-Public Use
  Company Number: US-PFIZER INC-202100929399

PATIENT
  Age: 63 Year
  Sex: Female

DRUGS (24)
  1. XELJANZ XR [Suspect]
     Active Substance: TOFACITINIB CITRATE
     Indication: Psoriatic arthropathy
     Dosage: 11 MG, DAILY
     Route: 048
     Dates: start: 2018
  2. XELJANZ XR [Suspect]
     Active Substance: TOFACITINIB CITRATE
     Indication: Psoriatic arthropathy
     Dosage: 11 MG, ALTERNATE DAY
     Route: 048
     Dates: start: 2018
  3. DOCONEXENT\MINERALS\VITAMINS [Concomitant]
     Active Substance: DOCONEXENT\MINERALS\VITAMINS
     Dosage: UNK (SOFT GEL)
  4. ANASTROZOLE [Concomitant]
     Active Substance: ANASTROZOLE
     Dosage: 1 MG
  5. BUPROPION HYDROCHLORIDE [Concomitant]
     Active Substance: BUPROPION HYDROCHLORIDE
     Dosage: UNK
  6. HUMIRA [Concomitant]
     Active Substance: ADALIMUMAB
     Dosage: UNK ( PEN)
  7. CALCIUM CITRATE/MAGNESIUM CITRATE [Concomitant]
     Dosage: UNK
  8. GLUCOSAMINE SULFATE [Concomitant]
     Active Substance: GLUCOSAMINE SULFATE
     Dosage: UNK
  9. ACETYLCYSTEINE [Concomitant]
     Active Substance: ACETYLCYSTEINE
     Dosage: UNK
  10. BROMELAINS [Concomitant]
     Active Substance: BROMELAINS
     Dosage: UNK
  11. VITAMIN A + D [RETINOL;VITAMIN D NOS] [Concomitant]
     Dosage: UNK
  12. BIFIDOBACTERIUM ANIMALIS LACTIS [Concomitant]
     Active Substance: BIFIDOBACTERIUM ANIMALIS LACTIS
     Dosage: UNK
  13. CALCIUM [Concomitant]
     Active Substance: CALCIUM
     Dosage: UNK
  14. DHEA + PREGNENOLONE COMPLEX [Concomitant]
     Dosage: UNK
  15. DIGESTIVE PROBIOTICS ADVANCED [Concomitant]
     Dosage: UNK
  16. FISH OIL [Concomitant]
     Active Substance: FISH OIL
     Dosage: UNK
  17. MINERALS\VITAMINS [Concomitant]
     Active Substance: MINERALS\VITAMINS
     Dosage: UNK
  18. NALTREXONE [Concomitant]
     Active Substance: NALTREXONE
     Dosage: UNK
  19. OSTERA [ACHYRANTHES BIDENTATA ROOT;ANGELICA GIGAS ROOT;CARTHAMUS TINCT [Concomitant]
     Dosage: UNK
  20. PREGNENOLONE [Concomitant]
     Active Substance: PREGNENOLONE
     Dosage: UNK
  21. DIETARY SUPPLEMENT\PROBIOTICS [Concomitant]
     Active Substance: DIETARY SUPPLEMENT\PROBIOTICS
     Dosage: UNK
  22. VITAMIN C + ZINK [Concomitant]
     Dosage: UNK
  23. VITAMIN D3 [Concomitant]
     Active Substance: CHOLECALCIFEROL
     Dosage: UNK
  24. VITAMIN K1 [Concomitant]
     Active Substance: PHYTONADIONE
     Dosage: UNK

REACTIONS (6)
  - Product dose omission issue [Unknown]
  - Nasopharyngitis [Not Recovered/Not Resolved]
  - Off label use [Unknown]
  - Coronavirus infection [Unknown]
  - Treatment noncompliance [Not Recovered/Not Resolved]
  - Infection [Recovered/Resolved]

NARRATIVE: CASE EVENT DATE: 20210601
